FAERS Safety Report 11558554 (Version 6)
Quarter: 2019Q4

REPORT INFORMATION
  Report Type: Spontaneous
  Country: JP (occurrence: JP)
  Receive Date: 20150928
  Receipt Date: 20191203
  Transmission Date: 20200122
  Serious: Yes (Congenital Anomaly)
  Sender: FDA-Public Use
  Company Number: JP-AMGEN-JPNSP2015100063

PATIENT
  Sex: Female
  Weight: 1.1 kg

DRUGS (3)
  1. NESP [Suspect]
     Active Substance: DARBEPOETIN ALFA
     Indication: PRODUCT USED FOR UNKNOWN INDICATION
     Dosage: 120 MICROGRAM, Q4WK
     Route: 064
  2. NESP [Suspect]
     Active Substance: DARBEPOETIN ALFA
     Dosage: 30 MICROGRAM, 2-4 WEEKS
     Route: 064
  3. NESP [Suspect]
     Active Substance: DARBEPOETIN ALFA
     Dosage: 60 MICROGRAM, Q2WK
     Route: 064

REACTIONS (1)
  - Congenital cystic kidney disease [Recovered/Resolved]
